FAERS Safety Report 4828834-X (Version None)
Quarter: 2005Q4

REPORT INFORMATION
  Report Type: 
  Country: None (occurrence: None)
  Receive Date: 20051014
  Receipt Date: 20050816
  Transmission Date: 20060501
  Serious: No
  Sender: FDA-Public Use
  Company Number: 2005SP001186

PATIENT
  Age: 43 Year
  Sex: Male
  Weight: 190.5108 kg

DRUGS (4)
  1. LUNESTA [Suspect]
     Indication: INSOMNIA
     Dosage: 2 MG; X1; ORAL
     Route: 048
     Dates: start: 20050525, end: 20050525
  2. BENICAR [Concomitant]
  3. ACCUPRIL [Concomitant]
  4. GLUCOPHAGE [Concomitant]

REACTIONS (4)
  - DIZZINESS [None]
  - DYSGEUSIA [None]
  - NAUSEA [None]
  - VOMITING [None]
